FAERS Safety Report 18579780 (Version 10)
Quarter: 2023Q4

REPORT INFORMATION
  Report Type: Spontaneous
  Country: US (occurrence: US)
  Receive Date: 20201204
  Receipt Date: 20231020
  Transmission Date: 20240109
  Serious: Yes (Hospitalization, Other)
  Sender: FDA-Public Use
  Company Number: US-PFIZER INC-2020479599

PATIENT
  Age: 78 Year
  Sex: Female
  Weight: 78.47 kg

DRUGS (6)
  1. XELJANZ [Suspect]
     Active Substance: TOFACITINIB CITRATE
     Indication: Rheumatoid arthritis
     Dosage: 5 MG, 2X/DAY
     Dates: start: 2000
  2. OXYCODONE [Concomitant]
     Active Substance: OXYCODONE
     Indication: Osteoarthritis
     Dosage: UNK
     Dates: start: 2018
  3. LEVOTHYROXINE [Concomitant]
     Active Substance: LEVOTHYROXINE
     Indication: Thyroid disorder
     Dosage: UNK
     Dates: start: 2006
  4. TOPIRAMATE [Concomitant]
     Active Substance: TOPIRAMATE
     Dosage: UNK
     Dates: start: 2000
  5. LOVASTATIN [Concomitant]
     Active Substance: LOVASTATIN
     Dosage: UNK
     Dates: start: 2006
  6. VITAMIN D2 [Concomitant]
     Active Substance: ERGOCALCIFEROL
     Indication: Bone density abnormal
     Dosage: UNK

REACTIONS (7)
  - Bladder cancer [Recovered/Resolved]
  - Cataract [Recovered/Resolved]
  - Hypoacusis [Recovered/Resolved]
  - Blindness [Recovered/Resolved]
  - Macular degeneration [Unknown]
  - Memory impairment [Recovered/Resolved]
  - Blood oestrogen decreased [Unknown]
